FAERS Safety Report 19660143 (Version 1)
Quarter: 2021Q3

REPORT INFORMATION
  Report Type: Spontaneous
  Country: US (occurrence: US)
  Receive Date: 20210804
  Receipt Date: 20210804
  Transmission Date: 20211014
  Serious: Yes (Hospitalization)
  Sender: FDA-Public Use
  Company Number: None

PATIENT
  Age: 53 Year
  Sex: Female

DRUGS (16)
  1. DULOXETINE. [Concomitant]
     Active Substance: DULOXETINE
  2. LISINOPRIL. [Concomitant]
     Active Substance: LISINOPRIL
  3. OXYCODONE [Concomitant]
     Active Substance: OXYCODONE
  4. ELIQUIS [Concomitant]
     Active Substance: APIXABAN
  5. METOPROLOL TAR [Concomitant]
     Active Substance: METOPROLOL TARTRATE
  6. MOTRIN IB [Concomitant]
     Active Substance: IBUPROFEN
  7. ROPINIROLE. [Concomitant]
     Active Substance: ROPINIROLE
  8. VITAMIN D3 [Concomitant]
     Active Substance: CHOLECALCIFEROL
  9. ATORVASTATIN [Concomitant]
     Active Substance: ATORVASTATIN
  10. CIPROFLOXACIN. [Concomitant]
     Active Substance: CIPROFLOXACIN
  11. DIAZEPAM. [Concomitant]
     Active Substance: DIAZEPAM
  12. REBIF REBIDOSE [Suspect]
     Active Substance: INTERFERON BETA-1A
     Indication: MULTIPLE SCLEROSIS
     Route: 058
     Dates: start: 20150311
  13. PANTOPRAZOLE [Concomitant]
     Active Substance: PANTOPRAZOLE
  14. ROSUVASTATIN. [Concomitant]
     Active Substance: ROSUVASTATIN
  15. STIMULANT [Concomitant]
     Active Substance: UNSPECIFIED INGREDIENT
  16. CLOPIDOGREL [Concomitant]
     Active Substance: CLOPIDOGREL BISULFATE

REACTIONS (3)
  - Myocardial infarction [None]
  - Therapy interrupted [None]
  - Cardiac arrest [None]

NARRATIVE: CASE EVENT DATE: 20210329
